FAERS Safety Report 9736241 (Version 1)
Quarter: 2013Q4

REPORT INFORMATION
  Report Type: Spontaneous
  Country: ES (occurrence: ES)
  Receive Date: 20131206
  Receipt Date: 20131206
  Transmission Date: 20140711
  Serious: Yes (Hospitalization)
  Sender: FDA-Public Use
  Company Number: ES-ROCHE-1311838

PATIENT
  Age: 44 Year
  Sex: Male

DRUGS (1)
  1. MABTHERA [Suspect]
     Indication: LYMPHOPROLIFERATIVE DISORDER
     Dosage: CONCENTRATED SOLUTION FOR PERFUSION 100 MG.
     Route: 042
     Dates: start: 20121129, end: 20121219

REACTIONS (1)
  - Oligodendroglioma [Recovering/Resolving]
